FAERS Safety Report 15695927 (Version 1)
Quarter: 2018Q4

REPORT INFORMATION
  Report Type: Spontaneous
  Country: US (occurrence: US)
  Receive Date: 20181126
  Receipt Date: 20181126
  Transmission Date: 20190205
  Serious: Yes (Life-Threatening, Other)
  Sender: FDA-Public Use
  Company Number: None

PATIENT
  Age: 24 Year
  Sex: Female
  Weight: 50.8 kg

DRUGS (1)
  1. FYCOMPA [Suspect]
     Active Substance: PERAMPANEL
     Indication: SEIZURE
     Dosage: ?          OTHER DOSE:2/4/6 MG;?
     Route: 048
     Dates: start: 20181018

REACTIONS (8)
  - Homicidal ideation [None]
  - Mood altered [None]
  - Gait inability [None]
  - Therapy cessation [None]
  - Anger [None]
  - Fear [None]
  - Suicidal ideation [None]
  - Drug ineffective [None]

NARRATIVE: CASE EVENT DATE: 201810
